FAERS Safety Report 6600316-4 (Version None)
Quarter: 2010Q1

REPORT INFORMATION
  Report Type: 
  Country: None (occurrence: None)
  Receive Date: 20100224
  Receipt Date: 20100215
  Transmission Date: 20100710
  Serious: Yes (Death)
  Sender: FDA-Public Use
  Company Number: US-ABBOTT-10P-163-0625222-00

PATIENT
  Sex: Male
  Weight: 83.082 kg

DRUGS (1)
  1. ZEMPLAR [Suspect]
     Indication: RENAL FAILURE CHRONIC

REACTIONS (4)
  - CARDIAC FAILURE [None]
  - RENAL FAILURE [None]
  - THROAT CANCER [None]
  - THROMBOTIC THROMBOCYTOPENIC PURPURA [None]
